FAERS Safety Report 5129943-0 (Version None)
Quarter: 2006Q4

REPORT INFORMATION
  Report Type: 
  Country: None (occurrence: None)
  Receive Date: 20061013
  Receipt Date: 20060925
  Transmission Date: 20070319
  Serious: Yes (Hospitalization)
  Sender: FDA-Public Use
  Company Number: ES200609006291

PATIENT
  Age: 75 Year
  Sex: Female

DRUGS (2)
  1. FORTEO [Suspect]
     Indication: OSTEOPOROSIS
     Dosage: 20 UG SUBCUTANEOUS
     Route: 058
  2. FORTEO [Concomitant]

REACTIONS (5)
  - ANAEMIA [None]
  - BONE MARROW DISORDER [None]
  - FATIGUE [None]
  - GASTRIC ULCER [None]
  - MALAISE [None]
